FAERS Safety Report 5903377-0 (Version None)
Quarter: 2008Q3

REPORT INFORMATION
  Report Type: 
  Country: None (occurrence: None)
  Receive Date: 20080926
  Receipt Date: 20080919
  Transmission Date: 20090109
  Serious: Yes (Other)
  Sender: FDA-Public Use
  Company Number: 2008SP019625

PATIENT
  Age: 70 Year
  Sex: Female

DRUGS (1)
  1. VIRAFERONPEG [Suspect]
     Indication: HEPATITIS C
     Dosage: 150 MG
     Dates: start: 20080901

REACTIONS (2)
  - DEHYDRATION [None]
  - LETHARGY [None]
